FAERS Safety Report 19031474 (Version 2)
Quarter: 2021Q2

REPORT INFORMATION
  Report Type: Report from Study
  Country: US (occurrence: US)
  Receive Date: 20210319
  Receipt Date: 20210503
  Transmission Date: 20210717
  Serious: Yes (Death, Hospitalization)
  Sender: FDA-Public Use
  Company Number: US-ASTRAZENECA-2021A152780

PATIENT
  Age: 35097 Day
  Sex: Female
  Weight: 75.8 kg

DRUGS (3)
  1. TAGRISSO [Suspect]
     Active Substance: OSIMERTINIB
     Indication: LUNG CARCINOMA CELL TYPE UNSPECIFIED STAGE IV
     Route: 048
     Dates: start: 202012
  2. MODERNA COVID 19 [Concomitant]
     Route: 065
  3. TAGRISSO [Suspect]
     Active Substance: OSIMERTINIB
     Indication: LUNG CARCINOMA CELL TYPE UNSPECIFIED STAGE IV
     Route: 048
     Dates: start: 20201211

REACTIONS (3)
  - Renal failure [Fatal]
  - Asthenia [Unknown]
  - Pneumonitis [Fatal]

NARRATIVE: CASE EVENT DATE: 20210309
